FAERS Safety Report 7622796-8 (Version None)
Quarter: 2011Q3

REPORT INFORMATION
  Report Type: 
  Country: None (occurrence: None)
  Receive Date: 20110719
  Receipt Date: 20110719
  Transmission Date: 20111222
  Serious: Yes (Hospitalization)
  Sender: FDA-Public Use
  Company Number: None

PATIENT
  Sex: Male
  Weight: 74.3899 kg

DRUGS (22)
  1. CYANOCOBALAMIN [Concomitant]
  2. VESICARE [Concomitant]
  3. SYNTHROID [Concomitant]
  4. LACTINEX [Concomitant]
  5. RANIBIZUMAB 2.0 GENENTECH (SAE UNRELATED TO DRUG) [Suspect]
     Indication: MACULAR DEGENERATION
     Dosage: 0.05 PRN IVT
     Route: 042
     Dates: start: 20100830
  6. RANIBIZUMAB 2.0 GENENTECH (SAE UNRELATED TO DRUG) [Suspect]
     Indication: MACULAR DEGENERATION
     Dosage: 0.05 PRN IVT
     Route: 042
     Dates: start: 20100930
  7. RANIBIZUMAB 2.0 GENENTECH (SAE UNRELATED TO DRUG) [Suspect]
     Indication: MACULAR DEGENERATION
     Dosage: 0.05 PRN IVT
     Route: 042
     Dates: start: 20100702
  8. RANIBIZUMAB 2.0 GENENTECH (SAE UNRELATED TO DRUG) [Suspect]
     Indication: MACULAR DEGENERATION
     Dosage: 0.05 PRN IVT
     Route: 042
     Dates: start: 20100730
  9. DOCUSATE [Concomitant]
  10. RANIBIZUMAB [Suspect]
     Dates: start: 20110602
  11. RANIBIZUMAB [Suspect]
     Dates: start: 20110505
  12. ALLEGRA [Concomitant]
  13. SINEMET [Concomitant]
  14. KLOR-CON [Concomitant]
  15. NORVASC [Concomitant]
  16. CIPROFLOXACIN HCL [Concomitant]
  17. LASIX [Concomitant]
  18. PROTONIX [Concomitant]
  19. METAMUCIL-2 [Concomitant]
  20. B-12 VITAMIN [Concomitant]
  21. PRILOSEC [Concomitant]
  22. LYRICA [Concomitant]

REACTIONS (1)
  - URINARY TRACT INFECTION [None]
